FAERS Safety Report 13740595 (Version 1)
Quarter: 2017Q3

REPORT INFORMATION
  Report Type: Spontaneous
  Country: US (occurrence: US)
  Receive Date: 20170711
  Receipt Date: 20170711
  Transmission Date: 20171127
  Serious: No
  Sender: FDA-Public Use
  Company Number: US-009507513-1706USA007423

PATIENT
  Age: 74 Year
  Sex: Male

DRUGS (1)
  1. JANUVIA [Suspect]
     Active Substance: SITAGLIPTIN PHOSPHATE
     Indication: DIABETES MELLITUS
     Dosage: 100 MG / 1 TABLET A DAY
     Route: 048
     Dates: start: 20170413

REACTIONS (6)
  - Pyrexia [Recovering/Resolving]
  - Chills [Recovered/Resolved]
  - Dizziness [Recovered/Resolved]
  - Chills [Recovering/Resolving]
  - Feeling abnormal [Recovered/Resolved]
  - Dizziness [Recovering/Resolving]

NARRATIVE: CASE EVENT DATE: 20170414
